FAERS Safety Report 23666460 (Version 1)
Quarter: 2024Q1

REPORT INFORMATION
  Report Type: Spontaneous
  Country: US (occurrence: US)
  Receive Date: 20240324
  Receipt Date: 20240324
  Transmission Date: 20240410
  Serious: Yes (Other)
  Sender: FDA-Public Use
  Company Number: US-JNJFOC-20240344663

PATIENT
  Sex: Female

DRUGS (1)
  1. TALQUETAMAB [Suspect]
     Active Substance: TALQUETAMAB
     Indication: Product used for unknown indication
     Route: 065

REACTIONS (34)
  - Neuropathy peripheral [Not Recovered/Not Resolved]
  - Malnutrition [Unknown]
  - Dry eye [Unknown]
  - Rhinorrhoea [Not Recovered/Not Resolved]
  - Hot flush [Unknown]
  - Skin atrophy [Unknown]
  - Gingival disorder [Unknown]
  - Plicated tongue [Unknown]
  - Skin wrinkling [Unknown]
  - Adverse event [Unknown]
  - Dry mouth [Unknown]
  - Onychomadesis [Unknown]
  - Pain in extremity [Unknown]
  - Rash [Unknown]
  - Ageusia [Unknown]
  - Dry skin [Not Recovered/Not Resolved]
  - Weight decreased [Unknown]
  - Nail growth abnormal [Not Recovered/Not Resolved]
  - Onychoclasis [Not Recovered/Not Resolved]
  - Nail disorder [Not Recovered/Not Resolved]
  - Onychoclasis [Not Recovered/Not Resolved]
  - Dry skin [Not Recovered/Not Resolved]
  - Taste disorder [Unknown]
  - Dysphagia [Unknown]
  - Headache [Not Recovered/Not Resolved]
  - Decreased appetite [Unknown]
  - Skin exfoliation [Recovered/Resolved]
  - Skin exfoliation [Recovered/Resolved]
  - Body height decreased [Unknown]
  - Rash [Unknown]
  - Pruritus [Unknown]
  - Nausea [Unknown]
  - Fatigue [Not Recovered/Not Resolved]
  - Diarrhoea [Unknown]
